FAERS Safety Report 9297030 (Version 1)
Quarter: 2013Q2

REPORT INFORMATION
  Report Type: Spontaneous
  Country: JP (occurrence: JP)
  Receive Date: 20130519
  Receipt Date: 20130519
  Transmission Date: 20140414
  Serious: Yes (Hospitalization)
  Sender: FDA-Public Use
  Company Number: JP-MYLANLABS-2013S1010343

PATIENT
  Age: 82 Year
  Sex: Female
  Weight: 33 kg

DRUGS (8)
  1. MIDAZOLAM [Suspect]
     Indication: SEDATIVE THERAPY
     Dosage: 2 DOSES OF 1MG
     Route: 065
  2. PROPOFOL [Suspect]
     Indication: SEDATIVE THERAPY
     Dosage: CONTINUOUS INFUSION OF 1.5 MG/KG/H
     Route: 050
  3. LIDOCAINE [Suspect]
     Indication: NERVE BLOCK
     Dosage: 10ML OF 1%
     Route: 065
  4. ROPIVACAINE [Suspect]
     Indication: NERVE BLOCK
     Dosage: 10ML OF 0.75%
     Route: 065
  5. FENTANYL [Suspect]
     Indication: BLOOD PRESSURE INCREASED
     Route: 065
  6. AMPICILLIN [Concomitant]
     Indication: PNEUMONIA
     Route: 065
  7. SULBACTAM [Concomitant]
     Indication: PNEUMONIA
     Route: 065
  8. BUPIVACAINE [Concomitant]
     Indication: SPINAL ANAESTHESIA
     Dosage: 0.5% ISOBARIC
     Route: 024

REACTIONS (2)
  - Hypercapnia [Recovering/Resolving]
  - Depressed level of consciousness [Recovered/Resolved]
